FAERS Safety Report 9970301 (Version 2)
Quarter: 2014Q1

REPORT INFORMATION
  Report Type: Spontaneous
  Country: FR (occurrence: FR)
  Receive Date: 20140306
  Receipt Date: 20140306
  Transmission Date: 20141002
  Serious: Yes (Other)
  Sender: FDA-Public Use
  Company Number: FR-BRISTOL-MYERS SQUIBB COMPANY-19550755

PATIENT
  Age: 78 Year
  Sex: Female

DRUGS (2)
  1. HYDREA CAPS 500 MG [Suspect]
     Indication: POLYCYTHAEMIA VERA
     Dosage: 1DF:1.5-2 CAPSULES PER DAY?INCREASE TO 2.5 TO 3 CAPSULES PER DAY
     Route: 048
     Dates: start: 200412, end: 20130913
  2. KARDEGIC [Concomitant]

REACTIONS (1)
  - Basal cell carcinoma [Recovered/Resolved with Sequelae]
